FAERS Safety Report 8127616-3 (Version None)
Quarter: 2012Q1

REPORT INFORMATION
  Report Type: 
  Country: None (occurrence: None)
  Receive Date: 20120210
  Receipt Date: 20120202
  Transmission Date: 20120608
  Serious: No
  Sender: FDA-Public Use
  Company Number: US-B.I. PHARMACEUTICALS,INC./RIDGEFIELD-2012-BP-02065BP

PATIENT
  Sex: Male

DRUGS (9)
  1. METOPROLOL [Concomitant]
     Indication: HYPERTENSION
  2. JALYN [Concomitant]
     Indication: BENIGN PROSTATIC HYPERPLASIA
  3. PRADAXA [Suspect]
     Indication: ATRIAL FIBRILLATION
     Dosage: 300 MG
     Route: 048
     Dates: start: 20110601, end: 20120121
  4. LISINOPRIL [Concomitant]
     Indication: HYPERTENSION
  5. LIPITOR [Concomitant]
     Indication: BLOOD CHOLESTEROL INCREASED
  6. COREG [Concomitant]
     Indication: HYPERTENSION
  7. PRADAXA [Suspect]
     Dosage: 300 MG
     Route: 048
     Dates: start: 20120126
  8. PROTONIX [Concomitant]
     Indication: GASTROOESOPHAGEAL REFLUX DISEASE
  9. TIMOPTIC [Concomitant]
     Indication: GLAUCOMA

REACTIONS (3)
  - COORDINATION ABNORMAL [None]
  - BALANCE DISORDER [None]
  - GAIT DISTURBANCE [None]
